FAERS Safety Report 21547849 (Version 2)
Quarter: 2022Q4

REPORT INFORMATION
  Report Type: Spontaneous
  Country: US (occurrence: US)
  Receive Date: 20221103
  Receipt Date: 20221119
  Transmission Date: 20230112
  Serious: Yes (Life-Threatening, Hospitalization)
  Sender: FDA-Public Use
  Company Number: US-TEVA-2022-US-2821430

PATIENT
  Age: 68 Year
  Sex: Male

DRUGS (11)
  1. NOREPINEPHRINE [Suspect]
     Active Substance: NOREPINEPHRINE
     Indication: Cardiogenic shock
     Dosage: 4 MICROG/KG/MIN
     Route: 065
  2. NOREPINEPHRINE [Suspect]
     Active Substance: NOREPINEPHRINE
     Dosage: 0.05 MICROG/KG/MIN
     Route: 065
  3. NOREPINEPHRINE [Suspect]
     Active Substance: NOREPINEPHRINE
     Dosage: ADMINISTERED BETWEEN 0 AND 0.32 MICROG/KG.
     Route: 065
  4. VASOPRESSIN [Suspect]
     Active Substance: VASOPRESSIN
     Indication: Cardiogenic shock
     Dosage: ADMINISTERED 0.02 UNIT/MIN
     Route: 065
  5. VASOPRESSIN [Suspect]
     Active Substance: VASOPRESSIN
     Dosage: ADMINISTERED BETWEEN BETWEEN 0 AND 0.5 UNITS/H.
     Route: 065
  6. DOBUTAMINE [Suspect]
     Active Substance: DOBUTAMINE HYDROCHLORIDE
     Indication: Cardiogenic shock
     Route: 065
  7. AMIODARONE [Concomitant]
     Active Substance: AMIODARONE
     Indication: Atrial fibrillation
     Route: 065
  8. ARGATROBAN [Concomitant]
     Active Substance: ARGATROBAN
     Indication: Anticoagulant therapy
     Dosage: ADMINISTERED 0.12MG/ML.
     Route: 065
  9. ARGATROBAN [Concomitant]
     Active Substance: ARGATROBAN
     Dosage: ADMINISTERED 0.06MG/ML.
     Route: 065
  10. ARGATROBAN [Concomitant]
     Active Substance: ARGATROBAN
     Dosage: ADMINISTERED 0.015MG/ML.
     Route: 065
  11. DEXTROSE [Concomitant]
     Active Substance: DEXTROSE
     Indication: Vehicle solution use
     Dosage: 10 PERCENT
     Route: 065

REACTIONS (1)
  - Drug ineffective [Unknown]
